FAERS Safety Report 24565850 (Version 1)
Quarter: 2024Q4

REPORT INFORMATION
  Report Type: Spontaneous
  Country: IN (occurrence: IN)
  Receive Date: 20241030
  Receipt Date: 20241030
  Transmission Date: 20250115
  Serious: Yes (Death, Hospitalization)
  Sender: MYLAN
  Company Number: IN-MYLANLABS-2024M1098530

PATIENT
  Age: 4 Month
  Sex: Female

DRUGS (4)
  1. PHENYTOIN [Suspect]
     Active Substance: PHENYTOIN
     Indication: Epilepsy
     Dosage: UNK, MOTHER RECEIVED SINCE THE AGE OF 15 YEARS
     Route: 064
  2. PHENYTOIN [Suspect]
     Active Substance: PHENYTOIN
     Indication: Epilepsy
     Dosage: UNK, MOTHER RECEIVED SINCE THE AGE OF 15 YEARS
     Route: 063
  3. AMOXICILLIN [Suspect]
     Active Substance: AMOXICILLIN
     Indication: Pneumonia
     Dosage: 200 MILLIGRAM, BID, PARENTERAL
     Route: 065
  4. COBALAMIN [Suspect]
     Active Substance: COBALAMIN
     Indication: Vitamin B12 deficiency
     Dosage: 500 MICROGRAM, QD
     Route: 030

REACTIONS (11)
  - Cardio-respiratory distress [Fatal]
  - Shock [Fatal]
  - Respiratory failure [Fatal]
  - Vitamin B12 deficiency [Fatal]
  - Anaemia megaloblastic [Fatal]
  - Developmental regression [Fatal]
  - Tremor [Fatal]
  - Pneumonia [Fatal]
  - Foetal exposure during pregnancy [Fatal]
  - Exposure via breast milk [Fatal]
  - Drug ineffective [Fatal]
